FAERS Safety Report 14353125 (Version 1)
Quarter: 2018Q1

REPORT INFORMATION
  Report Type: Spontaneous
  Country: JP (occurrence: JP)
  Receive Date: 20180104
  Receipt Date: 20180104
  Transmission Date: 20180509
  Serious: Yes (Death, Hospitalization, Other)
  Sender: FDA-Public Use
  Company Number: JP-BRISTOL-MYERS SQUIBB COMPANY-BMS-2017-120066

PATIENT
  Age: 56 Year
  Sex: Female

DRUGS (1)
  1. METGLUCO [Suspect]
     Active Substance: METFORMIN HYDROCHLORIDE
     Indication: PRODUCT USED FOR UNKNOWN INDICATION
     Dosage: 40 DF, SINGLE
     Route: 048

REACTIONS (9)
  - Renal impairment [Fatal]
  - Back pain [Fatal]
  - Death [Fatal]
  - Depressed level of consciousness [Fatal]
  - Poisoning [Fatal]
  - Overdose [Fatal]
  - Lactic acidosis [Fatal]
  - Cardio-respiratory arrest [Fatal]
  - Hypoventilation [Fatal]
